FAERS Safety Report 6493699-X (Version None)
Quarter: 2009Q4

REPORT INFORMATION
  Report Type: 
  Country: None (occurrence: None)
  Receive Date: 20091214
  Receipt Date: 20091214
  Transmission Date: 20100525
  Serious: Yes (Other)
  Sender: FDA-Public Use
  Company Number: D0063068A

PATIENT

DRUGS (1)
  1. ARIXTRA [Suspect]
     Indication: PROPHYLAXIS
     Route: 065

REACTIONS (2)
  - CONTRAINDICATION TO MEDICAL TREATMENT [None]
  - HAEMORRHAGE [None]
